FAERS Safety Report 13688803 (Version 3)
Quarter: 2017Q3

REPORT INFORMATION
  Report Type: Report from Study
  Country: GB (occurrence: GB)
  Receive Date: 20170626
  Receipt Date: 20170920
  Transmission Date: 20171127
  Serious: Yes (Death)
  Sender: FDA-Public Use
  Company Number: GB-ROCHE-1955513

PATIENT
  Sex: Female

DRUGS (8)
  1. DOCETAXEL. [Suspect]
     Active Substance: DOCETAXEL
     Indication: HER-2 POSITIVE BREAST CANCER
     Dosage: ON DAY 1 OF CYCLES 1-4
     Route: 042
  2. FLUOROURACIL. [Suspect]
     Active Substance: FLUOROURACIL
     Indication: HER-2 POSITIVE BREAST CANCER
     Dosage: ON DAY 1 OF CYCLE 5-8
     Route: 042
  3. CYCLOPHOSPHAMIDE. [Suspect]
     Active Substance: CYCLOPHOSPHAMIDE
     Indication: HER-2 POSITIVE BREAST CANCER
     Route: 040
  4. TRASTUZUMAB. [Suspect]
     Active Substance: TRASTUZUMAB
     Indication: HER-2 POSITIVE BREAST CANCER
     Dosage: LOADING DOSE?ON DAY 1 OF CYCLE 1?EIGHT CYCLES, EACH LASTING 3 WEEKS, FOR 24 WEEKS
     Route: 042
  5. EPIRUBICIN [Suspect]
     Active Substance: EPIRUBICIN
     Dosage: ON DAY 1 OF CYCLE 5-8
     Route: 040
  6. FLUOROURACIL. [Suspect]
     Active Substance: FLUOROURACIL
     Dosage: ON DAY 1 OF CYCLE 5-8
     Route: 040
  7. EPIRUBICIN [Suspect]
     Active Substance: EPIRUBICIN
     Indication: HER-2 POSITIVE BREAST CANCER
     Dosage: ON DAY 1 OF CYCLE 5-8
     Route: 042
  8. TRASTUZUMAB. [Suspect]
     Active Substance: TRASTUZUMAB
     Dosage: ON DAY 1 OF CYCLE 2-8?EIGHT CYCLES, EACH LASTING 3 WEEKS, FOR 24 WEEKS
     Route: 042

REACTIONS (1)
  - Acute myocardial infarction [Fatal]
